FAERS Safety Report 18365960 (Version 7)
Quarter: 2022Q1

REPORT INFORMATION
  Report Type: Spontaneous
  Country: US (occurrence: US)
  Receive Date: 20201009
  Receipt Date: 20220105
  Transmission Date: 20220423
  Serious: Yes (Other)
  Sender: FDA-Public Use
  Company Number: US-PFIZER INC-2020387509

PATIENT
  Age: 68 Year
  Sex: Female

DRUGS (6)
  1. CELECOXIB [Suspect]
     Active Substance: CELECOXIB
     Indication: Osteoarthritis
     Dosage: UNK
  2. LISINOPRIL [Concomitant]
     Active Substance: LISINOPRIL
     Indication: Blood pressure abnormal
     Dosage: UNK
  3. SYNTHROID [Concomitant]
     Active Substance: LEVOTHYROXINE SODIUM
     Indication: Autoimmune thyroiditis
     Dosage: UNK
  4. VALSARTAN [Concomitant]
     Active Substance: VALSARTAN
     Indication: Blood pressure abnormal
     Dosage: 40 MG
  5. VALSARTAN [Concomitant]
     Active Substance: VALSARTAN
     Dosage: 20 MG
  6. VALSARTAN [Concomitant]
     Active Substance: VALSARTAN
     Dosage: 80 MG, 2X/DAY

REACTIONS (9)
  - Back disorder [Not Recovered/Not Resolved]
  - Drug ineffective [Not Recovered/Not Resolved]
  - Myalgia [Unknown]
  - Body height decreased [Unknown]
  - Palpitations [Unknown]
  - Stress [Unknown]
  - Pain [Unknown]
  - Musculoskeletal pain [Unknown]
  - Dry eye [Unknown]
